FAERS Safety Report 4713522-0 (Version None)
Quarter: 2005Q3

REPORT INFORMATION
  Report Type: 
  Country: None (occurrence: None)
  Receive Date: 20050711
  Receipt Date: 20050223
  Transmission Date: 20060218
  Serious: Yes (Hospitalization)
  Sender: FDA-Public Use
  Company Number: 2005037540

PATIENT
  Age: 50 Year
  Sex: Male
  Weight: 80 kg

DRUGS (13)
  1. LINEZOLID SOLUTION, STERILE (LINEZOLID) [Suspect]
     Indication: CATHETER RELATED INFECTION
     Dosage: 1200 MG (600 MG, 2 IN 1 D), INTRAVENOUS
     Route: 042
     Dates: start: 20050204, end: 20050214
  2. ASPIRIN [Concomitant]
  3. SIMVASTATIN [Concomitant]
  4. ACETAMINOPHEN [Concomitant]
  5. MORPHINE [Concomitant]
  6. ACTOCORTINA (HYDROCORTISONE SODIUM PHOSPHATE) [Concomitant]
  7. AMIODARONE HCL [Concomitant]
  8. OMEPRAZOLE [Concomitant]
  9. DOPAMINE HCL [Concomitant]
  10. METOCLOPRAMIDE (METOCLOPRAMIDE) [Concomitant]
  11. MIDAZOLAM HCL [Concomitant]
  12. AZTREONAM (AZTREONAM) [Concomitant]
  13. PROPOFOL [Concomitant]

REACTIONS (22)
  - ANGIOSCLEROSIS [None]
  - ARTERIOSCLEROSIS [None]
  - BLOOD POTASSIUM DECREASED [None]
  - BLOOD SODIUM DECREASED [None]
  - BRONCHOPNEUMONIA [None]
  - CONDITION AGGRAVATED [None]
  - DERMATOMYOSITIS [None]
  - HYPERTENSION [None]
  - MULTI-ORGAN FAILURE [None]
  - NODULAR REGENERATIVE HYPERPLASIA [None]
  - PAIN [None]
  - PLEURAL EFFUSION [None]
  - PULMONARY CONGESTION [None]
  - PYREXIA [None]
  - RED BLOOD CELL COUNT DECREASED [None]
  - RENAL FAILURE [None]
  - RETROPERITONEAL HAEMATOMA [None]
  - SHOCK [None]
  - SPLENOMEGALY [None]
  - TACHYCARDIA [None]
  - THROMBOCYTOPENIA [None]
  - VOMITING [None]
